FAERS Safety Report 17672316 (Version 6)
Quarter: 2020Q3

REPORT INFORMATION
  Report Type: Spontaneous
  Country: JP (occurrence: JP)
  Receive Date: 20200415
  Receipt Date: 20200811
  Transmission Date: 20201102
  Serious: Yes (Death, Other)
  Sender: FDA-Public Use
  Company Number: JP-AMGEN-JPNSP2020055322

PATIENT
  Age: 60 Year
  Sex: Female

DRUGS (2)
  1. BLINCYTO [Suspect]
     Active Substance: BLINATUMOMAB
     Dosage: 28 MICROGRAM, QD
     Route: 041
     Dates: start: 20200407, end: 20200423
  2. BLINCYTO [Suspect]
     Active Substance: BLINATUMOMAB
     Indication: ACUTE LYMPHOCYTIC LEUKAEMIA REFRACTORY
     Dosage: 9 MICROGRAM, QD (APPROXIMATELY 5 ML/H)
     Route: 041
     Dates: start: 20200331, end: 20200406

REACTIONS (6)
  - Acute lymphocytic leukaemia refractory [Fatal]
  - Malaise [Unknown]
  - Diarrhoea [Recovering/Resolving]
  - Injection site haemorrhage [Recovered/Resolved]
  - C-reactive protein increased [Not Recovered/Not Resolved]
  - Hypoaesthesia [Unknown]

NARRATIVE: CASE EVENT DATE: 20200331
